FAERS Safety Report 9882620 (Version 1)
Quarter: 2014Q1

REPORT INFORMATION
  Report Type: Spontaneous
  Country: US (occurrence: US)
  Receive Date: 20140207
  Receipt Date: 20140207
  Transmission Date: 20141002
  Serious: No
  Sender: FDA-Public Use
  Company Number: US-009507513-1402USA000422

PATIENT
  Sex: Female

DRUGS (8)
  1. ZIOPTAN [Suspect]
     Indication: GLAUCOMA
     Dosage: ONE DROP IN EACH EYE AT NIGHT
     Route: 047
     Dates: start: 201312
  2. SINGULAIR [Concomitant]
  3. DULERA [Concomitant]
  4. HCTZ [Concomitant]
  5. VITAMINS (UNSPECIFIED) [Concomitant]
  6. TRAVATAN [Concomitant]
     Dosage: UNK
     Dates: end: 201306
  7. BRIMONIDINE TARTRATE [Concomitant]
     Dosage: UNK
     Dates: start: 201306
  8. COSOPT [Concomitant]
     Dosage: UNK
     Dates: start: 20131111

REACTIONS (3)
  - Ocular hyperaemia [Not Recovered/Not Resolved]
  - Eye pruritus [Not Recovered/Not Resolved]
  - Dry eye [Not Recovered/Not Resolved]
